FAERS Safety Report 15269893 (Version 3)
Quarter: 2018Q3

REPORT INFORMATION
  Report Type: Spontaneous
  Country: US (occurrence: US)
  Receive Date: 20180813
  Receipt Date: 20180814
  Transmission Date: 20181010
  Serious: Yes (Life-Threatening)
  Sender: FDA-Public Use
  Company Number: US-IBIGEN-2018.04645

PATIENT
  Age: 56 Year
  Sex: Female

DRUGS (2)
  1. INSULIN [Concomitant]
     Active Substance: INSULIN NOS
     Indication: TYPE 2 DIABETES MELLITUS
     Dosage: ()
  2. UNK [Suspect]
     Active Substance: UNSPECIFIED INGREDIENT
     Indication: PASTEURELLA INFECTION
     Dosage: ()
     Route: 042

REACTIONS (1)
  - Drug ineffective [Recovering/Resolving]
